FAERS Safety Report 5167333-5 (Version None)
Quarter: 2006Q4

REPORT INFORMATION
  Report Type: 
  Country: None (occurrence: None)
  Receive Date: 20061130
  Receipt Date: 20061117
  Transmission Date: 20070319
  Serious: Yes (Hospitalization)
  Sender: FDA-Public Use
  Company Number: 2006144497

PATIENT
  Sex: Female

DRUGS (1)
  1. LYRICA [Suspect]
     Dosage: 450 MG (150 MG,3 IN 1 D)
     Dates: start: 20060924

REACTIONS (1)
  - CEREBROVASCULAR ACCIDENT [None]
